FAERS Safety Report 20216185 (Version 2)
Quarter: 2022Q1

REPORT INFORMATION
  Report Type: Spontaneous
  Country: FR (occurrence: FR)
  Receive Date: 20211222
  Receipt Date: 20220322
  Transmission Date: 20220423
  Serious: Yes (Death)
  Sender: FDA-Public Use
  Company Number: None

PATIENT
  Age: 78 Year
  Sex: Male
  Weight: 83 kg

DRUGS (3)
  1. BISOPROLOL FUMARATE [Interacting]
     Active Substance: BISOPROLOL FUMARATE
     Indication: Cardiac failure chronic
     Dosage: 2.5 MG, QD (2.5MG/J)
     Route: 048
  2. ATROPINE SULFATE [Suspect]
     Active Substance: ATROPINE SULFATE
     Indication: Intestinal pseudo-obstruction
     Dosage: 0.5 MG, QD
     Route: 042
     Dates: start: 20211129
  3. NEOSTIGMINE BROMIDE [Suspect]
     Active Substance: NEOSTIGMINE BROMIDE
     Indication: Intestinal pseudo-obstruction
     Dosage: 2 MG
     Route: 042
     Dates: start: 20211129

REACTIONS (2)
  - Cardio-respiratory arrest [Fatal]
  - Pulseless electrical activity [Fatal]

NARRATIVE: CASE EVENT DATE: 20211129
